FAERS Safety Report 24292765 (Version 1)
Quarter: 2024Q3

REPORT INFORMATION
  Report Type: Spontaneous
  Country: US (occurrence: None)
  Receive Date: 20240906
  Receipt Date: 20240906
  Transmission Date: 20241017
  Serious: No
  Sender: DOMPE FARMACEUTICI
  Company Number: US-FARMAPROD-202310-3016

PATIENT
  Age: 75 Year
  Sex: Male

DRUGS (20)
  1. OXERVATE [Suspect]
     Active Substance: CENEGERMIN-BKBJ
     Indication: Neurotrophic keratopathy
     Route: 047
     Dates: start: 20231007
  2. OXERVATE [Suspect]
     Active Substance: CENEGERMIN-BKBJ
  3. OXERVATE [Suspect]
     Active Substance: CENEGERMIN-BKBJ
  4. ACETAMINOPHEN\HYDROCODONE [Concomitant]
     Active Substance: ACETAMINOPHEN\HYDROCODONE
  5. LAMISIL [Concomitant]
     Active Substance: TERBINAFINE HYDROCHLORIDE
  6. NASONEX [Concomitant]
     Active Substance: MOMETASONE FUROATE
     Dosage: 24 HOUR ALLERGY
  7. CLARITIN [Concomitant]
     Active Substance: LORATADINE
  8. LACTOBACILLUS ACIDOPHILUS [Concomitant]
     Active Substance: LACTOBACILLUS ACIDOPHILUS
     Dosage: 1 MM CELL
  9. FINASTERIDE [Concomitant]
     Active Substance: FINASTERIDE
  10. MIRALAX [Concomitant]
     Active Substance: POLYETHYLENE GLYCOL 3350
     Dosage: 17 GRAM / DOSE
  11. ASPIRIN [Concomitant]
     Active Substance: ASPIRIN
  12. TYLENOL [Concomitant]
     Active Substance: ACETAMINOPHEN
  13. TAMSULOSIN HYDROCHLORIDE [Concomitant]
     Active Substance: TAMSULOSIN HYDROCHLORIDE
  14. PANTOPRAZOLE SODIUM [Concomitant]
     Active Substance: PANTOPRAZOLE SODIUM
  15. RETAINE MGD [Concomitant]
     Active Substance: LIGHT MINERAL OIL\MINERAL OIL
     Dosage: 0.5 %-0.5%
  16. MOXIFLOXACIN [Concomitant]
     Active Substance: MOXIFLOXACIN
  17. MONTELUKAST SODIUM [Concomitant]
     Active Substance: MONTELUKAST\MONTELUKAST SODIUM
  18. MELOXICAM [Concomitant]
     Active Substance: MELOXICAM
  19. LISINOPRIL [Concomitant]
     Active Substance: LISINOPRIL
  20. AMLODIPINE BESYLATE [Concomitant]
     Active Substance: AMLODIPINE BESYLATE

REACTIONS (3)
  - Device use issue [Recovered/Resolved]
  - Product administration error [Recovered/Resolved]
  - Inappropriate schedule of product administration [Unknown]

NARRATIVE: CASE EVENT DATE: 20231007
